FAERS Safety Report 14067163 (Version 2)
Quarter: 2017Q4

REPORT INFORMATION
  Report Type: Spontaneous
  Country: DK (occurrence: DK)
  Receive Date: 20171009
  Receipt Date: 20171225
  Transmission Date: 20180321
  Serious: Yes (Hospitalization, Disabling)
  Sender: FDA-Public Use
  Company Number: PHHY2017DK144979

PATIENT
  Age: 43 Year
  Sex: Female

DRUGS (4)
  1. LYRICA [Concomitant]
     Active Substance: PREGABALIN
     Indication: PRODUCT USED FOR UNKNOWN INDICATION
     Route: 065
     Dates: start: 20160708
  2. PARACETAMOL [Concomitant]
     Active Substance: ACETAMINOPHEN
     Indication: PRODUCT USED FOR UNKNOWN INDICATION
     Dosage: 8 UNK, QD
     Route: 065
  3. FEMINIL MITE [Suspect]
     Active Substance: CYPROTERONE ACETATE\ETHINYL ESTRADIOL
     Indication: CONTRACEPTION
     Dosage: 1 DF, QD (2.0+0.035 MG)
     Route: 048
     Dates: start: 1990, end: 20160523
  4. TRAMADOL. [Concomitant]
     Active Substance: TRAMADOL
     Indication: PRODUCT USED FOR UNKNOWN INDICATION
     Route: 065

REACTIONS (18)
  - Peroneal nerve palsy [Unknown]
  - Balance disorder [Not Recovered/Not Resolved]
  - Muscular weakness [Unknown]
  - Impaired work ability [Recovered/Resolved]
  - Pain threshold decreased [Unknown]
  - Gait disturbance [Not Recovered/Not Resolved]
  - Peripheral artery thrombosis [Recovered/Resolved]
  - Skin discolouration [Unknown]
  - Pallor [Unknown]
  - Peripheral coldness [Recovered/Resolved]
  - Dysaesthesia [Not Recovered/Not Resolved]
  - Pain in extremity [Not Recovered/Not Resolved]
  - Capillary nail refill test abnormal [Recovered/Resolved]
  - Peripheral pulse decreased [Recovered/Resolved]
  - Ultrasound Doppler abnormal [Unknown]
  - Sleep disorder [Unknown]
  - Nail infection [Unknown]
  - Mobility decreased [Not Recovered/Not Resolved]

NARRATIVE: CASE EVENT DATE: 201605
